FAERS Safety Report 6994456-8 (Version None)
Quarter: 2010Q3

REPORT INFORMATION
  Report Type: 
  Country: None (occurrence: None)
  Receive Date: 20100917
  Receipt Date: 20100909
  Transmission Date: 20110219
  Serious: No
  Sender: FDA-Public Use
  Company Number: JP-JNJFOC-20100900001

PATIENT
  Sex: Female

DRUGS (11)
  1. LEVOFLOXACIN [Suspect]
     Indication: URINARY TRACT INFECTION
     Route: 048
  2. LEVOFLOXACIN [Suspect]
     Route: 048
  3. LEVOFLOXACIN [Suspect]
     Route: 048
  4. LEVOFLOXACIN [Suspect]
     Indication: CYSTITIS
     Route: 048
  5. LEVOFLOXACIN [Suspect]
     Route: 048
  6. LEVOFLOXACIN [Suspect]
     Route: 048
  7. VOLTAREN [Concomitant]
     Indication: PYREXIA
     Route: 065
  8. ARTIST [Concomitant]
     Indication: PRODUCT USED FOR UNKNOWN INDICATION
     Route: 048
  9. PHENYTOIN SODIUM [Concomitant]
     Indication: PRODUCT USED FOR UNKNOWN INDICATION
     Route: 048
  10. HYDANTOL F [Concomitant]
     Indication: PRODUCT USED FOR UNKNOWN INDICATION
     Route: 048
  11. NU-LOTAN [Concomitant]
     Indication: PRODUCT USED FOR UNKNOWN INDICATION
     Route: 048

REACTIONS (3)
  - DIZZINESS [None]
  - DYSPNOEA [None]
  - TACHYCARDIA [None]
